FAERS Safety Report 6780682-X (Version None)
Quarter: 2010Q2

REPORT INFORMATION
  Report Type: 
  Country: None (occurrence: None)
  Receive Date: 20100621
  Receipt Date: 20100611
  Transmission Date: 20101027
  Serious: No
  Sender: FDA-Public Use
  Company Number: US-BIOGENIDEC-2010BI020253

PATIENT
  Sex: Female

DRUGS (1)
  1. TYSABRI [Suspect]
     Indication: MULTIPLE SCLEROSIS
     Route: 042
     Dates: start: 20061106

REACTIONS (10)
  - APHASIA [None]
  - ARTHRALGIA [None]
  - CONTUSION [None]
  - FALL [None]
  - FATIGUE [None]
  - HEAD INJURY [None]
  - LUNG INFECTION [None]
  - MULTIPLE SCLEROSIS [None]
  - URINARY TRACT INFECTION [None]
  - WEIGHT DECREASED [None]
